FAERS Safety Report 13794369 (Version 2)
Quarter: 2017Q3

REPORT INFORMATION
  Report Type: Spontaneous
  Country: US (occurrence: US)
  Receive Date: 20170726
  Receipt Date: 20170816
  Transmission Date: 20171127
  Serious: No
  Sender: FDA-Public Use
  Company Number: US-PFIZER INC-2017320959

PATIENT
  Sex: Female

DRUGS (3)
  1. METHOTREXATE SODIUM. [Suspect]
     Active Substance: METHOTREXATE SODIUM
     Dosage: 15 MG, WEEKLY
  2. AMLODIPINE BESILATE [Suspect]
     Active Substance: AMLODIPINE BESYLATE
     Dosage: 5 MG, UNK
  3. METOPROLOL SUCCINATE. [Suspect]
     Active Substance: METOPROLOL SUCCINATE
     Dosage: 50 MG, UNK

REACTIONS (18)
  - Flank pain [Unknown]
  - Fatigue [Unknown]
  - Paraesthesia [Unknown]
  - Muscle tightness [Unknown]
  - Irritable bowel syndrome [Unknown]
  - Depression [Unknown]
  - Blood pressure increased [Unknown]
  - Pain in extremity [Unknown]
  - Dry eye [Unknown]
  - Anxiety [Unknown]
  - Joint effusion [Unknown]
  - Hypoaesthesia [Unknown]
  - Poor quality sleep [Unknown]
  - Arthralgia [Unknown]
  - Alopecia [Unknown]
  - Sleep disorder [Unknown]
  - Joint swelling [Unknown]
  - Joint range of motion decreased [Unknown]
